FAERS Safety Report 12201552 (Version 1)
Quarter: 2016Q1

REPORT INFORMATION
  Report Type: Spontaneous
  Country: US (occurrence: US)
  Receive Date: 20160322
  Receipt Date: 20160322
  Transmission Date: 20160526
  Serious: No
  Sender: FDA-Public Use
  Company Number: US-SA-2015SA178176

PATIENT
  Age: 62 Year
  Sex: Female

DRUGS (1)
  1. NASACORT ALLERGY 24HR [Suspect]
     Active Substance: TRIAMCINOLONE ACETONIDE
     Dosage: TWO SPRAYS IN EACH NOSTRIL
     Route: 045

REACTIONS (4)
  - Rhinorrhoea [Unknown]
  - Headache [Unknown]
  - Drug ineffective [Unknown]
  - Cough [Unknown]
